FAERS Safety Report 9725279 (Version 1)
Quarter: 2013Q4

REPORT INFORMATION
  Report Type: Spontaneous
  Country: US (occurrence: None)
  Receive Date: 20131129
  Receipt Date: 20131129
  Transmission Date: 20140711
  Serious: Yes (Hospitalization)
  Sender: FDA-Public Use
  Company Number: VAL_02834_2013

PATIENT
  Age: 34 Year
  Sex: Female
  Weight: 83 kg

DRUGS (12)
  1. METOPROLOL [Suspect]
     Indication: HYPERTENSION
     Route: 048
     Dates: start: 20130205
  2. PROGRAF [Concomitant]
  3. NIFEDIPINE [Concomitant]
  4. CELLCEPT [Concomitant]
  5. PREDNISOLONE [Concomitant]
  6. CLONIDINE [Concomitant]
  7. VITAMIN D3 [Concomitant]
  8. FUROSEMIDE [Concomitant]
  9. MAGNESIUM OXIDE [Concomitant]
  10. MULTIVITAMINS [Concomitant]
  11. PROTONIX [Concomitant]
  12. SODIUM BICARBONATE [Concomitant]

REACTIONS (8)
  - Cytomegalovirus infection [None]
  - Fatigue [None]
  - White blood cell count [None]
  - Cardiomegaly [None]
  - Left ventricular hypertrophy [None]
  - Cytomegalovirus viraemia [None]
  - Renal failure chronic [None]
  - Glomerulonephritis membranoproliferative [None]
